FAERS Safety Report 16587275 (Version 3)
Quarter: 2019Q3

REPORT INFORMATION
  Report Type: Spontaneous
  Country: US (occurrence: US)
  Receive Date: 20190717
  Receipt Date: 20190917
  Transmission Date: 20191004
  Serious: Yes (Hospitalization, Other)
  Sender: FDA-Public Use
  Company Number: US-SA-2019SA190522

PATIENT
  Age: 46 Year
  Sex: Female

DRUGS (2)
  1. PRALUENT [Suspect]
     Active Substance: ALIROCUMAB
     Indication: HYPERCHOLESTEROLAEMIA
     Dosage: 75 MG
     Route: 058
     Dates: start: 20190501, end: 2019
  2. PRALUENT [Suspect]
     Active Substance: ALIROCUMAB
     Dosage: 75 UNK
     Route: 058
     Dates: start: 2019

REACTIONS (7)
  - Diarrhoea [Unknown]
  - Product dose omission [Unknown]
  - Nausea [Unknown]
  - Injection site bruising [Unknown]
  - Intussusception [Unknown]
  - Abdominal pain [Unknown]
  - Injection site erythema [Unknown]

NARRATIVE: CASE EVENT DATE: 2019
